FAERS Safety Report 8941460 (Version 1)
Quarter: 2012Q4

REPORT INFORMATION
  Report Type: 
  Country: CZ (occurrence: CZ)
  Receive Date: 20121203
  Receipt Date: 20121203
  Transmission Date: 20130627
  Serious: Yes (Other)
  Sender: FDA-Public Use
  Company Number: CZ-ROCHE-1160076

PATIENT
  Age: 48 Year
  Sex: Female

DRUGS (5)
  1. AVASTIN [Suspect]
     Indication: COLORECTAL CANCER
     Route: 065
  2. XELODA [Suspect]
     Indication: COLORECTAL CANCER
     Route: 065
  3. OXALIPLATIN [Suspect]
     Indication: COLORECTAL CANCER
     Route: 065
  4. IRINOTECAN [Concomitant]
     Dosage: 5 cycles in total
     Route: 065
     Dates: start: 201104, end: 201111
  5. VECTIBIX [Concomitant]
     Route: 065
     Dates: start: 201112

REACTIONS (3)
  - Neurotoxicity [Recovered/Resolved]
  - Thrombocytopenia [Unknown]
  - Disease progression [Unknown]
